FAERS Safety Report 12499190 (Version 2)
Quarter: 2016Q3

REPORT INFORMATION
  Report Type: Spontaneous
  Country: JP (occurrence: JP)
  Receive Date: 20160627
  Receipt Date: 20160719
  Transmission Date: 20161109
  Serious: Yes (Other)
  Sender: FDA-Public Use
  Company Number: JP-SUN PHARMACEUTICAL INDUSTRIES LTD-2016RR-119082

PATIENT
  Age: 63 Year
  Sex: Female
  Weight: 45 kg

DRUGS (4)
  1. OXALIPLATIN. [Suspect]
     Active Substance: OXALIPLATIN
     Indication: COLON CANCER
     Dosage: 17 COURSES
     Route: 065
  2. PANITUMUMAB [Suspect]
     Active Substance: PANITUMUMAB
     Indication: COLON CANCER
     Dosage: 200 MG/BODY, 17 COURSES
     Route: 065
  3. FLUOROURACIL. [Suspect]
     Active Substance: FLUOROURACIL
     Indication: COLON CANCER
     Dosage: 17 COURSES
     Route: 065
  4. CALCIUM FOLINAT [Suspect]
     Active Substance: LEUCOVORIN CALCIUM
     Indication: COLON CANCER
     Dosage: 17 COURSES
     Route: 065

REACTIONS (3)
  - Neutropenia [Unknown]
  - Skin disorder [Unknown]
  - Bone marrow failure [Unknown]
